FAERS Safety Report 4520051-6 (Version None)
Quarter: 2004Q4

REPORT INFORMATION
  Report Type: 
  Country: None (occurrence: None)
  Receive Date: 20041027
  Receipt Date: 20040610
  Transmission Date: 20050328
  Serious: No
  Sender: FDA-Public Use
  Company Number: US079783

PATIENT
  Age: 29 Year
  Sex: Female
  Weight: 71.4 kg

DRUGS (5)
  1. SENSIPAR [Suspect]
     Indication: HYPERPARATHYROIDISM SECONDARY
     Dosage: 30 MG, 1 IN 1 DAYS, PO
     Route: 048
     Dates: start: 20040526
  2. IRON [Concomitant]
  3. CALCITRIOL [Concomitant]
  4. LOSARTAN POTASSIUM [Concomitant]
  5. BECLOMETHASONE DIPROPIONATE [Concomitant]

REACTIONS (2)
  - CHONDROCALCINOSIS PYROPHOSPHATE [None]
  - TENOSYNOVITIS [None]
